FAERS Safety Report 5070209-5 (Version None)
Quarter: 2006Q3

REPORT INFORMATION
  Report Type: 
  Country: None (occurrence: None)
  Receive Date: 20060731
  Receipt Date: 20060708
  Transmission Date: 20061208
  Serious: Yes (Other)
  Sender: FDA-Public Use
  Company Number: 0610010

PATIENT
  Age: 3 Year
  Sex: Female
  Weight: 0.4536 kg

DRUGS (1)
  1. NITISINONE/COMPASS.USE [Suspect]
     Indication: TYROSINAEMIA
     Dosage: 1MG/KG MG/KG/DAY; ORAL
     Route: 048
     Dates: start: 20040528, end: 20041006

REACTIONS (3)
  - DRUG INEFFECTIVE [None]
  - HEPATOCELLULAR DAMAGE [None]
  - LIVER TRANSPLANT [None]
